FAERS Safety Report 14562775 (Version 2)
Quarter: 2019Q2

REPORT INFORMATION
  Report Type: Spontaneous
  Country: US (occurrence: US)
  Receive Date: 20180222
  Receipt Date: 20190401
  Transmission Date: 20190711
  Serious: Yes (Death, Hospitalization, Other)
  Sender: FDA-Public Use
  Company Number: US-PFIZER INC-2018074473

PATIENT
  Age: 71 Year
  Sex: Female
  Weight: 58.97 kg

DRUGS (3)
  1. LYRICA [Suspect]
     Active Substance: PREGABALIN
     Indication: DIABETIC NEUROPATHY
     Dosage: UNK
  2. PROAIR HFA [Concomitant]
     Active Substance: ALBUTEROL SULFATE
     Indication: DYSPNOEA
     Dosage: UNK
  3. PREDNISONE. [Concomitant]
     Active Substance: PREDNISONE
     Indication: DYSPNOEA
     Dosage: UNK

REACTIONS (6)
  - Fall [Unknown]
  - Death [Fatal]
  - Upper limb fracture [Unknown]
  - Pneumonia [Recovering/Resolving]
  - White blood cell count increased [Unknown]
  - Hip fracture [Unknown]

NARRATIVE: CASE EVENT DATE: 20180208
